FAERS Safety Report 13162777 (Version 1)
Quarter: 2017Q1

REPORT INFORMATION
  Report Type: Spontaneous
  Country: US (occurrence: US)
  Receive Date: 20170128
  Receipt Date: 20170128
  Transmission Date: 20170428
  Serious: Yes (Other)
  Sender: FDA-Public Use
  Company Number: None

PATIENT
  Age: 66 Year
  Sex: Female
  Weight: 78.75 kg

DRUGS (9)
  1. TRAZADONE HCL [Concomitant]
     Active Substance: TRAZODONE HYDROCHLORIDE
  2. THYROXINE (SYNTHROID) [Concomitant]
  3. LOSARTAN/HCTZ [Concomitant]
     Active Substance: HYDROCHLOROTHIAZIDE\LOSARTAN
  4. ENTOCORT [Suspect]
     Active Substance: BUDESONIDE
     Indication: COLITIS
     Dosage: ?          QUANTITY:6 CAPSULE(S);?
     Route: 048
     Dates: start: 20161004, end: 20170125
  5. DOXYCYCLINE HYCLATE. [Concomitant]
     Active Substance: DOXYCYCLINE HYCLATE
  6. VESICARE [Concomitant]
     Active Substance: SOLIFENACIN SUCCINATE
  7. DESOXIMETASONE OINTMENT [Concomitant]
  8. APRISO [Concomitant]
     Active Substance: MESALAMINE
  9. VITAMINS [Concomitant]
     Active Substance: VITAMINS

REACTIONS (10)
  - Cushingoid [None]
  - Snoring [None]
  - Dysphagia [None]
  - Dyspnoea [None]
  - Contusion [None]
  - Swollen tongue [None]
  - Pharyngeal oedema [None]
  - Dry mouth [None]
  - Abdominal distension [None]
  - Alopecia [None]

NARRATIVE: CASE EVENT DATE: 20170127
